FAERS Safety Report 5868868-X (Version None)
Quarter: 2008Q3

REPORT INFORMATION
  Report Type: 
  Country: None (occurrence: None)
  Receive Date: 20080903
  Receipt Date: 20080826
  Transmission Date: 20090109
  Serious: Yes (Hospitalization)
  Sender: FDA-Public Use
  Company Number: FR-ASTRAZENECA-2008CG01266

PATIENT
  Age: 31239 Day
  Sex: Female

DRUGS (4)
  1. FOSCAVIR [Suspect]
     Indication: ENCEPHALITIS HERPES
     Route: 041
     Dates: start: 20080723, end: 20080805
  2. FOSCAVIR [Suspect]
     Route: 041
     Dates: start: 20080806
  3. CYMEVAN [Suspect]
     Indication: ENCEPHALITIS HERPES
     Route: 042
     Dates: start: 20080723, end: 20080805
  4. CYMEVAN [Suspect]
     Route: 042
     Dates: start: 20080806

REACTIONS (3)
  - ASPARTATE AMINOTRANSFERASE INCREASED [None]
  - CHOLESTASIS [None]
  - GAMMA-GLUTAMYLTRANSFERASE INCREASED [None]
